FAERS Safety Report 10186261 (Version 1)
Quarter: 2014Q2

REPORT INFORMATION
  Report Type: Spontaneous
  Country: AT (occurrence: AT)
  Receive Date: 20140521
  Receipt Date: 20140521
  Transmission Date: 20141212
  Serious: Yes (Hospitalization)
  Sender: FDA-Public Use
  Company Number: AT-009507513-1405AUT010600

PATIENT
  Age: 64 Year
  Sex: Female

DRUGS (15)
  1. SIMVASTATIN [Suspect]
  2. AMELIOR [Suspect]
     Dosage: UNK, QD
     Route: 048
     Dates: start: 2011
  3. LYRICA [Suspect]
     Dosage: 600 MG, UNK
     Route: 065
     Dates: start: 2009
  4. AMLODIPINE BESYLATE [Suspect]
     Dosage: 5 MG, UNK
     Route: 065
     Dates: start: 2004
  5. PAROXAT [Suspect]
     Dosage: 40 MG, UNK
     Route: 065
     Dates: start: 20130901, end: 20130912
  6. SAROTEN [Suspect]
     Dosage: 50 MG, UNK
     Route: 065
     Dates: start: 20130719, end: 20130721
  7. SAROTEN [Suspect]
     Dosage: 75 MG, UNK
     Route: 065
     Dates: start: 20130722, end: 20130722
  8. SAROTEN [Suspect]
     Dosage: 100 UNK, UNK
     Route: 065
     Dates: start: 20130723
  9. SEROQUEL [Suspect]
     Dosage: 400 MG, UNK
     Route: 065
     Dates: start: 201101
  10. PRAXITEN [Suspect]
     Dosage: UNK
     Route: 065
     Dates: start: 201101
  11. EUTHYROX [Suspect]
     Dosage: 125 MICROGRAM, UNK
     Route: 065
     Dates: start: 2000
  12. PANTOLOC [Suspect]
     Dosage: 40 MG, UNK
     Route: 065
     Dates: start: 2004
  13. GLUCOPHAGE [Suspect]
     Dosage: 2000 MG, UNK
     Route: 065
     Dates: start: 2011
  14. DIAMICRON [Suspect]
     Dosage: 30 MG, UNK
     Route: 065
     Dates: start: 2012
  15. FENTANYL [Suspect]
     Dosage: 37.5 MG, UNK
     Route: 065
     Dates: start: 2013

REACTIONS (6)
  - Fatigue [Unknown]
  - Somnolence [Unknown]
  - Disorientation [Unknown]
  - Dizziness [Unknown]
  - Altered state of consciousness [Unknown]
  - Drug interaction [Unknown]
